FAERS Safety Report 18692762 (Version 3)
Quarter: 2025Q3

REPORT INFORMATION
  Report Type: Spontaneous
  Country: EU (occurrence: EU)
  Receive Date: 20210104
  Receipt Date: 20250912
  Transmission Date: 20251021
  Serious: Yes (Hospitalization, Other)
  Sender: AUROBINDO
  Company Number: EU-SA-2020SA361515

PATIENT
  Age: 76 Year
  Sex: Male

DRUGS (1)
  1. DIPHENHYDRAMINE [Suspect]
     Active Substance: DIPHENHYDRAMINE
     Indication: Product used for unknown indication
     Route: 048

REACTIONS (18)
  - Dementia [Unknown]
  - Electroencephalogram abnormal [Unknown]
  - Psychotic symptom [Recovering/Resolving]
  - Anticholinergic syndrome [Unknown]
  - Intentional overdose [Unknown]
  - Tachycardia [Unknown]
  - Atrophy [Unknown]
  - Basal ganglia infarction [Unknown]
  - Hypokalaemia [Unknown]
  - Delusion [Recovering/Resolving]
  - Strabismus [Unknown]
  - Constipation [Unknown]
  - Facial paresis [Unknown]
  - Urinary hesitation [Unknown]
  - Hypertension [Unknown]
  - Anaemia [Unknown]
  - Cognitive disorder [Unknown]
  - Psychomotor hyperactivity [Recovering/Resolving]
